FAERS Safety Report 11336670 (Version 1)
Quarter: 2015Q3

REPORT INFORMATION
  Report Type: Spontaneous
  Country: US (occurrence: US)
  Receive Date: 20150804
  Receipt Date: 20150804
  Transmission Date: 20151125
  Serious: Yes (Other)
  Sender: FDA-Public Use
  Company Number: US-PFIZER INC-2015252624

PATIENT
  Sex: Female
  Weight: 47.62 kg

DRUGS (1)
  1. ADVIL [Suspect]
     Active Substance: IBUPROFEN
     Dosage: UNK

REACTIONS (14)
  - Impaired work ability [Unknown]
  - Depression suicidal [Unknown]
  - Disability [Unknown]
  - Cerebrovascular accident [Unknown]
  - Amnesia [Unknown]
  - Personality change [Unknown]
  - Urinary incontinence [Unknown]
  - Transient ischaemic attack [Unknown]
  - Depressed mood [Unknown]
  - Sexual dysfunction [Unknown]
  - Language disorder [Unknown]
  - Hypersomnia [Unknown]
  - Mobility decreased [Unknown]
  - Fear [Unknown]

NARRATIVE: CASE EVENT DATE: 2006
